FAERS Safety Report 19687067 (Version 2)
Quarter: 2022Q1

REPORT INFORMATION
  Report Type: Spontaneous
  Country: US (occurrence: US)
  Receive Date: 20210811
  Receipt Date: 20220304
  Transmission Date: 20220424
  Serious: No
  Sender: FDA-Public Use
  Company Number: US-PFIZER INC-2021882194

PATIENT
  Age: 61 Year
  Sex: Female

DRUGS (4)
  1. LYRICA [Suspect]
     Active Substance: PREGABALIN
     Indication: Neuralgia
     Dosage: 350 MG, DAILY (THREE CAPSULES IN THE MORNING AND FOUR CAPSULES IN THE EVENING)
     Route: 048
     Dates: start: 2012
  2. LYRICA [Suspect]
     Active Substance: PREGABALIN
     Indication: Multiple sclerosis
  3. LYRICA [Suspect]
     Active Substance: PREGABALIN
     Indication: Post herpetic neuralgia
  4. LYRICA [Suspect]
     Active Substance: PREGABALIN
     Indication: Neuralgia

REACTIONS (5)
  - Intentional product misuse [Unknown]
  - Drug hypersensitivity [Unknown]
  - Sinus disorder [Unknown]
  - Eye allergy [Unknown]
  - Rhinorrhoea [Unknown]
